FAERS Safety Report 5567576-2 (Version None)
Quarter: 2007Q4

REPORT INFORMATION
  Report Type: 
  Country: None (occurrence: None)
  Receive Date: 20071214
  Receipt Date: 20071205
  Transmission Date: 20080405
  Serious: Yes (Hospitalization, Disabling)
  Sender: FDA-Public Use
  Company Number: OSCN-NO-0709S-0361

PATIENT
  Age: 14 Year
  Sex: Male

DRUGS (10)
  1. OMNISCAN [Suspect]
     Indication: GLAUCOMA
     Dosage: 10 ML, SINGLE DOSE, I.V.
     Route: 042
     Dates: start: 20060904, end: 20060904
  2. EPOETIN [Concomitant]
  3. FAMOTIDINE [Concomitant]
  4. CEFMETAZOLE SODIUM (CEFMETAZON) [Concomitant]
  5. PENTAZOCINE (SOSEGON) [Concomitant]
  6. ALFACALCIDOL (ONEALFA) [Concomitant]
  7. FERROUS CITRATE (FEROMIA) [Concomitant]
  8. ALLOPURINOL [Concomitant]
  9. AMLODIPINE BESYLATE [Concomitant]
  10. CANDESARTAN CILEXETIL (BLOPRESS) [Concomitant]

REACTIONS (5)
  - AZOTAEMIA [None]
  - EYE EXCISION [None]
  - NEPHROGENIC ANAEMIA [None]
  - NEPHROGENIC SYSTEMIC FIBROSIS [None]
  - RENAL OSTEODYSTROPHY [None]
